FAERS Safety Report 11831433 (Version 1)
Quarter: 2015Q4

REPORT INFORMATION
  Report Type: Spontaneous
  Country: US (occurrence: None)
  Receive Date: 20151211
  Receipt Date: 20151211
  Transmission Date: 20160305
  Serious: No
  Sender: FDA-Public Use
  Company Number: None

PATIENT
  Age: 77 Year
  Sex: Male

DRUGS (6)
  1. ZYTIGA [Suspect]
     Active Substance: ABIRATERONE ACETATE
     Indication: PROSTATE CANCER
     Route: 048
     Dates: start: 20151116
  2. CALCITROL [Concomitant]
     Active Substance: CALCITRIOL
  3. PREDNISONE. [Concomitant]
     Active Substance: PREDNISONE
  4. ALPRAZOLAM. [Concomitant]
     Active Substance: ALPRAZOLAM
  5. AUG BETAMET [Concomitant]
  6. A-HYDROCORT [Concomitant]
     Active Substance: HYDROCORTISONE SODIUM SUCCINATE

REACTIONS (1)
  - Constipation [None]

NARRATIVE: CASE EVENT DATE: 20151116
